FAERS Safety Report 8954155 (Version 2)
Quarter: 2012Q4

REPORT INFORMATION
  Report Type: 
  Country: JP (occurrence: JP)
  Receive Date: 20121207
  Receipt Date: 20121219
  Transmission Date: 20130627
  Serious: No
  Sender: FDA-Public Use
  Company Number: JP-JNJFOC-20121201317

PATIENT
  Age: 82 Year
  Sex: Female

DRUGS (7)
  1. REMINYL [Suspect]
     Indication: PRODUCT USED FOR UNKNOWN INDICATION
     Route: 048
     Dates: start: 20120714
  2. MEMANTINE HYDROCHLORIDE [Concomitant]
     Route: 048
  3. ROZEREM [Concomitant]
     Route: 048
  4. TETRAMIDE [Concomitant]
     Route: 048
  5. ERISPAN [Concomitant]
     Route: 048
  6. EFONIDIPINE HYDROCHLORIDE [Concomitant]
     Route: 048
  7. MEVALOTIN [Concomitant]
     Route: 048

REACTIONS (1)
  - Hypoaesthesia [Not Recovered/Not Resolved]
